FAERS Safety Report 11051269 (Version 4)
Quarter: 2015Q2

REPORT INFORMATION
  Report Type: Spontaneous
  Country: US (occurrence: US)
  Receive Date: 20150421
  Receipt Date: 20150511
  Transmission Date: 20150821
  Serious: Yes (Other)
  Sender: FDA-Public Use
  Company Number: US-PFIZER INC-2015128511

PATIENT
  Age: 78 Year
  Sex: Female
  Weight: 63.49 kg

DRUGS (4)
  1. HYDROCHLOROTHIAZIDE. [Concomitant]
     Active Substance: HYDROCHLOROTHIAZIDE
     Indication: FLUID RETENTION
     Dosage: 0.5 MG, 2X/DAY
  2. AMLODIPINE BESILATE [Concomitant]
     Active Substance: AMLODIPINE BESYLATE
     Indication: HYPERTENSION
     Dosage: 10 MG, UNK
  3. LOSARTAN POTASSIUM. [Concomitant]
     Active Substance: LOSARTAN POTASSIUM
     Indication: HYPERTENSION
     Dosage: 50 MG, 1X/DAY
  4. PREMARIN [Suspect]
     Active Substance: ESTROGENS, CONJUGATED
     Indication: VULVOVAGINAL DRYNESS
     Dosage: 0.625 MG, ALTERNATE DAY (EVERY OTHER DAY)
     Route: 067
     Dates: start: 2010

REACTIONS (12)
  - Colitis [Unknown]
  - Catheter site inflammation [Unknown]
  - Poor quality drug administered [Unknown]
  - Product quality issue [Unknown]
  - Retching [Unknown]
  - Eating disorder [Unknown]
  - Weight decreased [Not Recovered/Not Resolved]
  - Diarrhoea haemorrhagic [Not Recovered/Not Resolved]
  - Bowel movement irregularity [Unknown]
  - Stress [Unknown]
  - Malaise [Unknown]
  - Skin disorder [Unknown]

NARRATIVE: CASE EVENT DATE: 201502
